FAERS Safety Report 23074485 (Version 3)
Quarter: 2023Q4

REPORT INFORMATION
  Report Type: Report from Study
  Country: CA (occurrence: CA)
  Receive Date: 20231017
  Receipt Date: 20231113
  Transmission Date: 20240109
  Serious: Yes (Hospitalization, Other)
  Sender: FDA-Public Use
  Company Number: CA-MYLANLABS-2022M1041849

PATIENT
  Sex: Male

DRUGS (3)
  1. HULIO [Suspect]
     Active Substance: ADALIMUMAB-FKJP
     Indication: Ankylosing spondylitis
     Dosage: 40 MILLIGRAM, BIWEEKLY
     Route: 058
  2. HULIO [Suspect]
     Active Substance: ADALIMUMAB-FKJP
     Dosage: 40 MILLIGRAM, QW (7)
     Route: 058
     Dates: start: 20211220
  3. METHOTREXATE [Concomitant]
     Active Substance: METHOTREXATE
     Dosage: UNK
     Route: 065

REACTIONS (10)
  - Oedema peripheral [Unknown]
  - Lymphadenopathy [Unknown]
  - Ankylosing spondylitis [Unknown]
  - Injection site extravasation [Recovered/Resolved]
  - Back pain [Unknown]
  - Therapy interrupted [Unknown]
  - Off label use [Unknown]
  - Product quality issue [Unknown]
  - Musculoskeletal stiffness [Unknown]
  - Product dose omission issue [Unknown]
